FAERS Safety Report 7701109-7 (Version None)
Quarter: 2011Q3

REPORT INFORMATION
  Report Type: 
  Country: None (occurrence: None)
  Receive Date: 20110819
  Receipt Date: 20110819
  Transmission Date: 20111222
  Serious: Yes (Other)
  Sender: FDA-Public Use
  Company Number: None

PATIENT
  Age: 63 Year
  Sex: Male

DRUGS (6)
  1. REVLIMID [Suspect]
     Indication: MULTIPLE MYELOMA
     Dosage: REVLIMID 5 MG EVERY OTHER DAY ORALLY
     Route: 048
     Dates: start: 20091201, end: 20110701
  2. ATENOLO [Concomitant]
  3. FLUTICASONE PROPIONATE [Concomitant]
  4. FAMOTIDINE [Concomitant]
  5. WARFARIN SODIUM [Concomitant]
  6. AMLODIPINE [Concomitant]

REACTIONS (2)
  - PULMONARY EMBOLISM [None]
  - PANCYTOPENIA [None]
